FAERS Safety Report 5213788-7 (Version None)
Quarter: 2007Q1

REPORT INFORMATION
  Report Type: 
  Country: None (occurrence: None)
  Receive Date: 20070119
  Receipt Date: 20070109
  Transmission Date: 20070707
  Serious: Yes (Death, Hospitalization, Other)
  Sender: FDA-Public Use
  Company Number: JP-PFIZER INC-2006104786

PATIENT
  Sex: Male

DRUGS (13)
  1. ZYVOX [Suspect]
     Indication: STAPHYLOCOCCAL SEPSIS
     Route: 042
     Dates: start: 20060529, end: 20060615
  2. ZYVOX [Suspect]
     Indication: STAPHYLOCOCCAL SEPSIS
     Route: 048
     Dates: start: 20060616, end: 20060718
  3. VANCOMYCIN [Concomitant]
     Indication: PSEUDOMEMBRANOUS COLITIS
     Route: 042
     Dates: start: 20060419, end: 20060630
  4. MEROPEN [Concomitant]
     Indication: PSEUDOMONAL SEPSIS
     Route: 042
     Dates: start: 20060621, end: 20060629
  5. MAXIPIME [Concomitant]
     Indication: PSEUDOMONAL SEPSIS
     Route: 042
     Dates: start: 20060701, end: 20060713
  6. SULBACTAM SODIUM [Concomitant]
     Indication: PSEUDOMONAL SEPSIS
     Route: 042
     Dates: start: 20060713, end: 20060718
  7. LAFUTIDINE [Concomitant]
     Indication: GASTRITIS
     Route: 048
  8. LANIRAPID [Concomitant]
     Indication: CARDIAC FAILURE
     Route: 048
  9. WARFARIN SODIUM [Concomitant]
     Indication: CARDIAC FAILURE
     Route: 048
  10. ARTIST [Concomitant]
     Indication: CARDIAC FAILURE
     Route: 048
  11. RISPERDAL [Concomitant]
     Indication: RESTLESSNESS
     Route: 048
     Dates: start: 20060626, end: 20060718
  12. ANTHROBIN P [Concomitant]
     Indication: DISSEMINATED INTRAVASCULAR COAGULATION
     Route: 042
     Dates: start: 20060624, end: 20060711
  13. HANP [Concomitant]
     Indication: CARDIAC FAILURE
     Route: 042
     Dates: start: 20060713, end: 20060718

REACTIONS (7)
  - AORTIC VALVE INCOMPETENCE [None]
  - CARDIAC FAILURE [None]
  - DISSEMINATED INTRAVASCULAR COAGULATION [None]
  - DRUG RESISTANCE [None]
  - HEPATITIS [None]
  - PATHOGEN RESISTANCE [None]
  - PLATELET COUNT DECREASED [None]
